FAERS Safety Report 13463006 (Version 2)
Quarter: 2017Q2

REPORT INFORMATION
  Report Type: Spontaneous
  Country: JP (occurrence: JP)
  Receive Date: 20170420
  Receipt Date: 20170612
  Transmission Date: 20170830
  Serious: Yes (Death, Other)
  Sender: FDA-Public Use
  Company Number: JP-PFIZER INC-2017171268

PATIENT
  Age: 69 Year
  Sex: Male
  Weight: 41 kg

DRUGS (3)
  1. VFEND [Suspect]
     Active Substance: VORICONAZOLE
     Dosage: UNK
     Route: 048
  2. CEFTRIAXONE. [Concomitant]
     Active Substance: CEFTRIAXONE
  3. AZITHROMYCIN ANHYDROUS. [Concomitant]
     Active Substance: AZITHROMYCIN ANHYDROUS
     Route: 042

REACTIONS (5)
  - Condition aggravated [Unknown]
  - Haemoptysis [Unknown]
  - Dyspnoea [Unknown]
  - Death [Fatal]
  - Oxygen saturation decreased [Unknown]
